FAERS Safety Report 7619957-0 (Version None)
Quarter: 2011Q3

REPORT INFORMATION
  Report Type: 
  Country: None (occurrence: None)
  Receive Date: 20110719
  Receipt Date: 20110706
  Transmission Date: 20111222
  Serious: Yes (Other)
  Sender: FDA-Public Use
  Company Number: US-ELI_LILLY_AND_COMPANY-US201107002385

PATIENT
  Sex: Female

DRUGS (7)
  1. NEXIUM [Concomitant]
  2. POTASSIUM CHLORIDE [Concomitant]
  3. SYNTHROID [Concomitant]
  4. ONDANSETRON [Concomitant]
  5. CYMBALTA [Suspect]
     Indication: MAJOR DEPRESSION
     Dosage: 60 MG, QD
     Dates: start: 20070601
  6. LIPITOR [Concomitant]
  7. XELODA [Concomitant]

REACTIONS (2)
  - METASTASES TO LIVER [None]
  - LUNG NEOPLASM MALIGNANT [None]
